FAERS Safety Report 4966428-6 (Version None)
Quarter: 2006Q2

REPORT INFORMATION
  Report Type: 
  Country: None (occurrence: None)
  Receive Date: 20060407
  Receipt Date: 20060306
  Transmission Date: 20061013
  Serious: Yes (Hospitalization, Disabling)
  Sender: FDA-Public Use
  Company Number: US-ROCHE-439154

PATIENT
  Age: 29 Year
  Sex: Female
  Weight: 48.1 kg

DRUGS (4)
  1. VESANOID [Suspect]
     Dosage: GIVEN AS 40 MG AND 30 MG.
     Route: 048
     Dates: start: 20060126, end: 20060306
  2. VESANOID [Suspect]
     Route: 048
     Dates: start: 20060320
  3. DAUNORUBICIN HCL [Concomitant]
     Route: 065
     Dates: start: 20060320
  4. RISPERDAL [Concomitant]

REACTIONS (8)
  - ABNORMAL BEHAVIOUR [None]
  - AGITATION [None]
  - ALOPECIA [None]
  - ANXIETY [None]
  - BIPOLAR DISORDER [None]
  - GRAND MAL CONVULSION [None]
  - PALPITATIONS [None]
  - STRESS [None]
